FAERS Safety Report 4685179-9 (Version None)
Quarter: 2005Q2

REPORT INFORMATION
  Report Type: 
  Country: None (occurrence: None)
  Receive Date: 20050603
  Receipt Date: 20030926
  Transmission Date: 20051028
  Serious: Yes (Hospitalization)
  Sender: FDA-Public Use
  Company Number: 181124

PATIENT
  Age: 77 Year
  Sex: Male

DRUGS (2)
  1. AVONEX [Suspect]
     Indication: MULTIPLE SCLEROSIS
     Dosage: 30 UG; QW; IM
     Route: 030
     Dates: start: 20030626
  2. INSULIN [Concomitant]

REACTIONS (6)
  - CARDIAC FAILURE [None]
  - CARDIOTOXICITY [None]
  - CHRONIC OBSTRUCTIVE AIRWAYS DISEASE EXACERBATED [None]
  - CONGESTIVE CARDIOMYOPATHY [None]
  - LEUKOCYTOSIS [None]
  - THROMBOPHLEBITIS [None]
